FAERS Safety Report 24091082 (Version 1)
Quarter: 2024Q3

REPORT INFORMATION
  Report Type: Spontaneous
  Country: US (occurrence: None)
  Receive Date: 20240712
  Receipt Date: 20240712
  Transmission Date: 20241017
  Serious: Yes (Hospitalization)
  Sender: Public
  Company Number: None

PATIENT
  Age: 51 Year
  Sex: Male

DRUGS (1)
  1. SKYRIZI [Suspect]
     Active Substance: RISANKIZUMAB-RZAA
     Indication: Crohn^s disease
     Dosage: 360MG  EVERY 8 WEEKS UNDER THE SKIN?
     Route: 058
     Dates: start: 202401

REACTIONS (3)
  - Abdominal symptom [None]
  - Gastrointestinal disorder [None]
  - Intestinal operation [None]

NARRATIVE: CASE EVENT DATE: 20240703
